FAERS Safety Report 6187916-3 (Version None)
Quarter: 2009Q2

REPORT INFORMATION
  Report Type: 
  Country: None (occurrence: None)
  Receive Date: 20090511
  Receipt Date: 20090427
  Transmission Date: 20091009
  Serious: Yes (Hospitalization)
  Sender: FDA-Public Use
  Company Number: 230039M09CAN

PATIENT
  Sex: Female
  Weight: 3.175 kg

DRUGS (1)
  1. REBIF [Suspect]
     Dosage: 44 MCG, TRANSPLACENTAL
     Route: 064
     Dates: end: 20071214

REACTIONS (2)
  - MATERNAL DRUGS AFFECTING FOETUS [None]
  - PNEUMONIA [None]
